FAERS Safety Report 8240298-5 (Version None)
Quarter: 2012Q1

REPORT INFORMATION
  Report Type: 
  Country: None (occurrence: None)
  Receive Date: 20120328
  Receipt Date: 20060403
  Transmission Date: 20120608
  Serious: Yes (Hospitalization, Other)
  Sender: FDA-Public Use
  Company Number: PHHY2006SG009431

PATIENT
  Age: 82 Year
  Sex: Female

DRUGS (8)
  1. MULTIVITAMIN [Concomitant]
  2. CLOTRIMAZOLE [Concomitant]
  3. BETAMETHASONE [Concomitant]
  4. CARBIMAZOLE [Concomitant]
  5. GENTAMICIN [Concomitant]
  6. PRAZOSIN HYDROCHLORIDE [Concomitant]
  7. SIMVASTATIN [Concomitant]
  8. GLEEVEC [Suspect]
     Indication: CHRONIC MYELOID LEUKAEMIA
     Dosage: 300 MG, QD
     Dates: start: 20050805

REACTIONS (4)
  - GALLBLADDER PAIN [None]
  - OTORRHOEA [None]
  - LACRIMATION INCREASED [None]
  - CHOLELITHIASIS [None]
